FAERS Safety Report 15025415 (Version 6)
Quarter: 2020Q1

REPORT INFORMATION
  Report Type: Report from Study
  Country: DE (occurrence: DE)
  Receive Date: 20180618
  Receipt Date: 20200306
  Transmission Date: 20200409
  Serious: Yes (Life-Threatening, Hospitalization)
  Sender: FDA-Public Use
  Company Number: PHHY2018DE021952

PATIENT
  Age: 48 Year
  Sex: Male
  Weight: 94 kg

DRUGS (10)
  1. ARGATRA [Suspect]
     Active Substance: ARGATROBAN
     Dosage: 15 UG/KG/MIN, UNK
     Route: 042
     Dates: start: 20180606, end: 20180606
  2. TRAMADOL. [Concomitant]
     Active Substance: TRAMADOL
     Indication: PANCREATITIS
     Dosage: UNK
     Route: 065
     Dates: start: 2013
  3. MORPHINE [Concomitant]
     Active Substance: MORPHINE
     Indication: PANCREATITIS
     Dosage: UNK
     Route: 065
     Dates: start: 2013
  4. DIAZEPAM. [Concomitant]
     Active Substance: DIAZEPAM
     Indication: PSYCHOPATHIC PERSONALITY
     Dosage: 10 MG, UNK
     Route: 065
     Dates: start: 2013
  5. PREDNISONE. [Concomitant]
     Active Substance: PREDNISONE
     Indication: PANCREATITIS
     Dosage: 15 UG, UNK
     Route: 065
     Dates: start: 2013
  6. DIABETIN [Concomitant]
     Indication: DIABETES MELLITUS
     Dosage: UNK
     Route: 065
     Dates: start: 2013
  7. HUMALOG [Concomitant]
     Active Substance: INSULIN LISPRO
     Indication: DIABETES MELLITUS
     Dosage: UNK
     Route: 065
     Dates: start: 2013
  8. ARGATRA [Suspect]
     Active Substance: ARGATROBAN
     Dosage: 20 UG/KG/MIN, UNK
     Route: 042
     Dates: start: 20180606, end: 20180606
  9. MORPHIN AL [Concomitant]
     Active Substance: MORPHINE SULFATE
     Indication: PANCREATITIS
     Dosage: 10 MG, UNK
     Route: 065
     Dates: start: 2013
  10. ARGATRA [Suspect]
     Active Substance: ARGATROBAN
     Indication: PRODUCT USED FOR UNKNOWN INDICATION
     Dosage: 300 UG/KG, UNK
     Route: 042
     Dates: start: 20180606, end: 20180606

REACTIONS (2)
  - Acute myocardial infarction [Recovered/Resolved]
  - Vascular stent thrombosis [Recovered/Resolved]

NARRATIVE: CASE EVENT DATE: 20180606
